FAERS Safety Report 8955683 (Version 4)
Quarter: 2013Q3

REPORT INFORMATION
  Report Type: Spontaneous
  Country: US (occurrence: US)
  Receive Date: 20121210
  Receipt Date: 20130906
  Transmission Date: 20140515
  Serious: Yes (Other)
  Sender: FDA-Public Use
  Company Number: US-US-EMD SERONO, INC.-7179981

PATIENT
  Sex: Male
  Weight: 50 kg

DRUGS (3)
  1. REBIF [Suspect]
     Indication: MULTIPLE SCLEROSIS
     Route: 058
     Dates: start: 20040108
  2. OXYCONTIN [Concomitant]
     Indication: BREAKTHROUGH PAIN
  3. OXYCONTIN [Concomitant]
     Indication: BREAKTHROUGH PAIN

REACTIONS (12)
  - Homicidal ideation [Recovered/Resolved]
  - Suicidal behaviour [Recovered/Resolved]
  - Drug hypersensitivity [Unknown]
  - Depression [Not Recovered/Not Resolved]
  - Anger [Unknown]
  - Cluster headache [Not Recovered/Not Resolved]
  - Injection site scar [Not Recovered/Not Resolved]
  - Visual impairment [Not Recovered/Not Resolved]
  - Fatigue [Not Recovered/Not Resolved]
  - Pain [Not Recovered/Not Resolved]
  - Injection site reaction [Not Recovered/Not Resolved]
  - Inappropriate schedule of drug administration [Unknown]
